FAERS Safety Report 14955307 (Version 1)
Quarter: 2018Q2

REPORT INFORMATION
  Report Type: Spontaneous
  Country: SE (occurrence: SE)
  Receive Date: 20180531
  Receipt Date: 20180531
  Transmission Date: 20180711
  Serious: Yes (Other)
  Sender: FDA-Public Use
  Company Number: SE-009507513-1805SWE012680

PATIENT
  Age: 72 Year
  Sex: Female

DRUGS (3)
  1. FLUOXETINE [Concomitant]
     Active Substance: FLUOXETINE HYDROCHLORIDE
  2. REMERON [Suspect]
     Active Substance: MIRTAZAPINE
     Indication: DEPRESSION
     Dosage: 15MG HS (IN THE EVENING), QD
     Route: 048
     Dates: start: 2002
  3. XANOR [Concomitant]
     Active Substance: ALPRAZOLAM

REACTIONS (1)
  - Drug dependence [Unknown]
